FAERS Safety Report 8959867 (Version 2)
Quarter: 2013Q1

REPORT INFORMATION
  Report Type: Spontaneous
  Country: US (occurrence: US)
  Receive Date: 20121211
  Receipt Date: 20130325
  Transmission Date: 20140127
  Serious: Yes (Other)
  Sender: FDA-Public Use
  Company Number: US-MYLANLABS-2012S1017232

PATIENT
  Age: 45 Year
  Sex: Male

DRUGS (3)
  1. THIORIDAZINE HYDROCHLORIDE [Suspect]
     Indication: SLEEP DISORDER
     Dates: start: 1999, end: 2001
  2. THIORIDAZINE HYDROCHLORIDE [Suspect]
     Indication: DEPRESSION
     Dates: start: 1999, end: 2001
  3. ZYPREXA [Suspect]

REACTIONS (2)
  - Priapism [Recovered/Resolved]
  - Erectile dysfunction [Not Recovered/Not Resolved]
